FAERS Safety Report 10927619 (Version 5)
Quarter: 2015Q3

REPORT INFORMATION
  Report Type: Report from Study
  Country: CA (occurrence: CA)
  Receive Date: 20150319
  Receipt Date: 20150923
  Transmission Date: 20151125
  Serious: Yes (Other)
  Sender: FDA-Public Use
  Company Number: CA-AMGEN-CANSL2015021643

PATIENT
  Age: 79 Year
  Sex: Female
  Weight: 76 kg

DRUGS (4)
  1. PROLIA [Suspect]
     Active Substance: DENOSUMAB
     Indication: OSTEOPOROSIS POSTMENOPAUSAL
     Dosage: 60 MG, Q6MO
     Route: 058
     Dates: start: 20130828
  2. VITAMIN D                          /00107901/ [Concomitant]
     Active Substance: ERGOCALCIFEROL
  3. CALCIUM [Concomitant]
     Active Substance: CALCIUM
  4. PROLIA [Suspect]
     Active Substance: DENOSUMAB
     Indication: COMPRESSION FRACTURE

REACTIONS (12)
  - Rash [Unknown]
  - Blister [Unknown]
  - Memory impairment [Unknown]
  - Device breakage [Unknown]
  - Breast cancer [Recovering/Resolving]
  - Skin discolouration [Unknown]
  - Arthritis [Unknown]
  - Ear pain [Unknown]
  - Erythema [Unknown]
  - Pain [Unknown]
  - Oropharyngeal pain [Unknown]
  - Fatigue [Unknown]

NARRATIVE: CASE EVENT DATE: 201308
